FAERS Safety Report 7991918-1 (Version None)
Quarter: 2011Q4

REPORT INFORMATION
  Report Type: 
  Country: None (occurrence: None)
  Receive Date: 20111219
  Receipt Date: 20111209
  Transmission Date: 20120403
  Serious: Yes (Hospitalization)
  Sender: FDA-Public Use
  Company Number: NL-PERRIGO-11NL010788

PATIENT
  Age: 56 Year
  Sex: Female

DRUGS (2)
  1. ACETAMINOPHEN [Suspect]
     Indication: SUICIDE ATTEMPT
     Dosage: UNK
     Route: 065
  2. OXAZEPAM [Suspect]
     Indication: SUICIDE ATTEMPT
     Dosage: UNK
     Route: 065

REACTIONS (5)
  - BRADYCARDIA [None]
  - HYPOTHERMIA [None]
  - COMA SCALE ABNORMAL [None]
  - HYPOTENSION [None]
  - ELECTROCARDIOGRAM ABNORMAL [None]
